FAERS Safety Report 9606918 (Version 1)
Quarter: 2013Q4

REPORT INFORMATION
  Report Type: Spontaneous
  Country: US (occurrence: US)
  Receive Date: 20131008
  Receipt Date: 20131008
  Transmission Date: 20140711
  Serious: No
  Sender: FDA-Public Use
  Company Number: US-AMGEN-USASP2013062115

PATIENT
  Sex: Female

DRUGS (1)
  1. PROLIA [Suspect]
     Indication: PRODUCT USED FOR UNKNOWN INDICATION
     Dosage: UNK
     Route: 065

REACTIONS (6)
  - Osteoporosis [Unknown]
  - General physical health deterioration [Unknown]
  - Fatigue [Unknown]
  - Tooth fracture [Unknown]
  - Blood calcium decreased [Unknown]
  - Blood calcium increased [Unknown]
